FAERS Safety Report 21358275 (Version 2)
Quarter: 2022Q4

REPORT INFORMATION
  Report Type: Spontaneous
  Country: JP (occurrence: JP)
  Receive Date: 20220921
  Receipt Date: 20221003
  Transmission Date: 20230113
  Serious: Yes (Other)
  Sender: FDA-Public Use
  Company Number: JP-ASTELLAS-2022JP012566

PATIENT
  Age: 8 Decade
  Sex: Male

DRUGS (1)
  1. XOSPATA [Suspect]
     Active Substance: GILTERITINIB
     Indication: Product used for unknown indication
     Route: 065
     Dates: start: 20220725, end: 20220822

REACTIONS (4)
  - Blast cell count increased [Unknown]
  - Stomatitis [Unknown]
  - Eczema [Unknown]
  - Malaise [Unknown]

NARRATIVE: CASE EVENT DATE: 20220801
